FAERS Safety Report 5088083-X (Version None)
Quarter: 2006Q3

REPORT INFORMATION
  Report Type: 
  Country: None (occurrence: None)
  Receive Date: 20060821
  Receipt Date: 20060808
  Transmission Date: 20061208
  Serious: Yes (Hospitalization, Other)
  Sender: FDA-Public Use
  Company Number: 2006095024

PATIENT
  Sex: Male
  Weight: 88.4514 kg

DRUGS (5)
  1. CAVERJECT [Suspect]
     Indication: ERECTILE DYSFUNCTION
     Dosage: 40 MCG (40 MCG, AS NECESSARY), PARENTERAL
     Route: 051
     Dates: start: 20050101
  2. VIAGRA [Suspect]
     Indication: ERECTILE DYSFUNCTION
     Dosage: 100 MG (100 MG, AS NECESSARY), ORAL
     Route: 048
  3. ANTI-PARKINSON AGENTS (ANTI-PARKINSON AGENTS) [Concomitant]
  4. REQUIP [Concomitant]
  5. SINEMET [Concomitant]

REACTIONS (6)
  - BUNION OPERATION [None]
  - DEVICE MALFUNCTION [None]
  - DRUG INEFFECTIVE [None]
  - INTENTIONAL DRUG MISUSE [None]
  - PHARMACEUTICAL PRODUCT COMPLAINT [None]
  - TOE DEFORMITY [None]
